FAERS Safety Report 4466727-0 (Version None)
Quarter: 2004Q4

REPORT INFORMATION
  Report Type: 
  Country: None (occurrence: None)
  Receive Date: 20041001
  Receipt Date: 20040922
  Transmission Date: 20050328
  Serious: Yes (Hospitalization)
  Sender: FDA-Public Use
  Company Number: 25199

PATIENT
  Age: 79 Year
  Sex: Female

DRUGS (3)
  1. TAMBOCOR [Suspect]
     Indication: ATRIAL FIBRILLATION
     Dosage: (100 MG, 2 IN 1 DAY (S)), ORAL
     Route: 048
     Dates: start: 19950101, end: 20040902
  2. ZESTRIL [Suspect]
  3. COREG [Suspect]

REACTIONS (3)
  - ASTHENIA [None]
  - DYSPNOEA [None]
  - MYOCARDIAL INFARCTION [None]
